FAERS Safety Report 7868112-8 (Version None)
Quarter: 2011Q4

REPORT INFORMATION
  Report Type: 
  Country: None (occurrence: None)
  Receive Date: 20111028
  Receipt Date: 20111027
  Transmission Date: 20120403
  Serious: Yes (Death, Other)
  Sender: FDA-Public Use
  Company Number: PHEH2008US09641

PATIENT
  Sex: Female

DRUGS (21)
  1. PREDNISONE [Concomitant]
     Route: 048
  2. FOSAMAX [Concomitant]
     Dosage: 10 MG, QD
     Route: 048
  3. ATACAND [Concomitant]
     Dosage: 16 MG, QD
     Route: 048
  4. TAXOL [Concomitant]
     Dates: end: 20021201
  5. DETROL                                  /USA/ [Concomitant]
  6. POTASSIUM CHLORIDE [Concomitant]
     Dosage: 20 MG, EVERY OTHER DAY
  7. CARDIZEM [Concomitant]
     Dosage: 120 MG, QD
     Route: 048
  8. ADRIAMYCIN PFS [Concomitant]
  9. LEVAQUIN [Concomitant]
     Dosage: 500 MG, QD
  10. DOXYCYCLINE [Concomitant]
  11. ZOMETA [Suspect]
     Indication: BREAST CANCER METASTATIC
     Dates: start: 20030101
  12. PROMETHAZINE [Concomitant]
  13. XELODA [Concomitant]
  14. CARBOPLATIN [Concomitant]
  15. MACROBID [Concomitant]
  16. LASIX [Concomitant]
     Dosage: 20 MG, EVERY OTHER DAY
  17. PREVACID [Concomitant]
     Dosage: 30 MG, QD
  18. LIPITOR [Concomitant]
     Dosage: 20 MG, QD
     Route: 048
  19. TAXOTERE [Concomitant]
  20. ZOFRAN [Concomitant]
  21. ARIMIDEX [Concomitant]

REACTIONS (44)
  - CHRONIC OBSTRUCTIVE PULMONARY DISEASE [None]
  - INFECTION [None]
  - INJURY [None]
  - CONSTIPATION [None]
  - PARAESTHESIA [None]
  - OSTEOPOROSIS [None]
  - OEDEMA PERIPHERAL [None]
  - ATELECTASIS [None]
  - PYREXIA [None]
  - HYPERTENSION [None]
  - POLLAKIURIA [None]
  - RENAL ATROPHY [None]
  - DEATH [None]
  - NEPHROLITHIASIS [None]
  - PLEURAL EFFUSION [None]
  - OSTEOMYELITIS [None]
  - ABSCESS [None]
  - MUCOSAL NECROSIS [None]
  - VOMITING [None]
  - HYPOAESTHESIA [None]
  - COLON CANCER [None]
  - METASTASES TO BONE [None]
  - OSTEONECROSIS OF JAW [None]
  - PURULENT DISCHARGE [None]
  - QUALITY OF LIFE DECREASED [None]
  - ARTHRITIS [None]
  - NEOPLASM MALIGNANT [None]
  - PNEUMOTHORAX [None]
  - HYDRONEPHROSIS [None]
  - HEPATIC NEOPLASM [None]
  - ABDOMINAL PAIN [None]
  - LARGE INTESTINAL OBSTRUCTION [None]
  - METASTASES TO ABDOMINAL CAVITY [None]
  - METASTATIC NEOPLASM [None]
  - OVARIAN CANCER [None]
  - HEPATIC MASS [None]
  - DYSURIA [None]
  - COUGH [None]
  - ASCITES [None]
  - OEDEMA [None]
  - FACIAL PAIN [None]
  - GASTROINTESTINAL HYPOMOTILITY [None]
  - OSTEOPENIA [None]
  - URETERIC OBSTRUCTION [None]
